FAERS Safety Report 20346432 (Version 2)
Quarter: 2022Q1

REPORT INFORMATION
  Report Type: Spontaneous
  Country: US (occurrence: US)
  Receive Date: 20220118
  Receipt Date: 20220221
  Transmission Date: 20220423
  Serious: No
  Sender: FDA-Public Use
  Company Number: US-GW PHARMA-202201USGW00161

PATIENT
  Sex: Female
  Weight: 52.608 kg

DRUGS (1)
  1. EPIDIOLEX [Suspect]
     Active Substance: CANNABIDIOL
     Indication: Idiopathic generalised epilepsy
     Dosage: 540 MILLIGRAM, FREQUENCY NOT REPORTED
     Route: 048
     Dates: start: 202106

REACTIONS (5)
  - COVID-19 [Unknown]
  - Hypophagia [Unknown]
  - Weight decreased [Unknown]
  - Diarrhoea [Unknown]
  - Product use in unapproved indication [Unknown]
